FAERS Safety Report 5703458-0 (Version None)
Quarter: 2008Q2

REPORT INFORMATION
  Report Type: 
  Country: None (occurrence: None)
  Receive Date: 20080411
  Receipt Date: 20080401
  Transmission Date: 20081010
  Serious: Yes (Other)
  Sender: FDA-Public Use
  Company Number: US-PFIZER INC-2008029837

PATIENT
  Sex: Male
  Weight: 81 kg

DRUGS (2)
  1. CHANTIX [Suspect]
     Indication: SMOKING CESSATION THERAPY
     Dates: start: 20070101, end: 20070101
  2. FLONASE [Concomitant]
     Indication: HYPERSENSITIVITY

REACTIONS (4)
  - ELECTROCARDIOGRAM ABNORMAL [None]
  - EYE ROLLING [None]
  - LOSS OF CONSCIOUSNESS [None]
  - NAUSEA [None]
